FAERS Safety Report 4732491-0 (Version None)
Quarter: 2005Q3

REPORT INFORMATION
  Report Type: 
  Country: None (occurrence: None)
  Receive Date: 20050803
  Receipt Date: 20041025
  Transmission Date: 20060218
  Serious: Yes (Hospitalization)
  Sender: FDA-Public Use
  Company Number: US-GLAXOSMITHKLINE-A0531785A

PATIENT
  Age: 41 Year
  Sex: Female

DRUGS (1)
  1. PAXIL CR [Suspect]
     Indication: DEPRESSION
     Route: 048
     Dates: start: 20020801

REACTIONS (14)
  - ABDOMINAL PAIN [None]
  - DEPENDENCE [None]
  - DEPRESSION [None]
  - DRUG WITHDRAWAL SYNDROME [None]
  - HAEMATOMA [None]
  - HYPERACUSIS [None]
  - INFLUENZA LIKE ILLNESS [None]
  - INSOMNIA [None]
  - MIGRAINE [None]
  - OVARIAN CYST RUPTURED [None]
  - PELVIC MASS [None]
  - PELVIC PERITONEAL ADHESIONS [None]
  - PERITONEAL HAEMORRHAGE [None]
  - PHOTOSENSITIVITY REACTION [None]
